FAERS Safety Report 17218538 (Version 1)
Quarter: 2020Q1

REPORT INFORMATION
  Report Type: Spontaneous
  Country: US (occurrence: US)
  Receive Date: 20191230
  Receipt Date: 20191230
  Transmission Date: 20200409
  Serious: Yes (Death, Hospitalization)
  Sender: FDA-Public Use
  Company Number: None

PATIENT
  Sex: Male
  Weight: 94.5 kg

DRUGS (16)
  1. OLMESARTAN [Concomitant]
     Active Substance: OLMESARTAN
  2. ALBUTEROL. [Concomitant]
     Active Substance: ALBUTEROL
  3. ALLOPURINOL. [Concomitant]
     Active Substance: ALLOPURINOL
  4. CHOLEST OFF [Concomitant]
  5. PRAVASTATIN. [Concomitant]
     Active Substance: PRAVASTATIN
  6. LEVOTHYROXIN [Concomitant]
     Active Substance: LEVOTHYROXINE
  7. AZITHROMYCIN ANHYDROUS. [Concomitant]
     Active Substance: AZITHROMYCIN ANHYDROUS
  8. ASPIRIN. [Concomitant]
     Active Substance: ASPIRIN
  9. GABAPENTIN. [Suspect]
     Active Substance: GABAPENTIN
     Indication: NEURALGIA
     Dosage: ?          QUANTITY:1 CAPSULE(S);?
     Route: 048
  10. BENZONATATE. [Concomitant]
     Active Substance: BENZONATATE
  11. COQ 10 [Concomitant]
     Active Substance: UBIDECARENONE
  12. FUROSEMIDE. [Concomitant]
     Active Substance: FUROSEMIDE
  13. CALCITONIN [Concomitant]
     Active Substance: CALCITONIN
  14. GLUCOSAMINE [Concomitant]
     Active Substance: GLUCOSAMINE
  15. BUDESONIDE. [Concomitant]
     Active Substance: BUDESONIDE
  16. SUCRALFATE. [Concomitant]
     Active Substance: SUCRALFATE

REACTIONS (1)
  - Pneumonia [None]
